FAERS Safety Report 13136090 (Version 1)
Quarter: 2017Q1

REPORT INFORMATION
  Report Type: Spontaneous
  Country: FR (occurrence: FR)
  Receive Date: 20170121
  Receipt Date: 20170121
  Transmission Date: 20170428
  Serious: Yes (Disabling)
  Sender: FDA-Public Use
  Company Number: FR-AMGEN-FRASP2016178814

PATIENT
  Age: 56 Year
  Sex: Male
  Weight: 85 kg

DRUGS (16)
  1. DISSOLVUROL [Concomitant]
     Active Substance: SILICON DIOXIDE
     Dosage: 30 DF, 2X/DAY
  2. BICARBONATE [Concomitant]
     Active Substance: BICARBONATE ION
     Dosage: 2 DF, UNK
     Route: 048
  3. PLAQUENIL [Concomitant]
     Active Substance: HYDROXYCHLOROQUINE SULFATE
     Dosage: 0.5 DF, DAILY
     Route: 048
  4. SPECIAFOLDINE [Concomitant]
     Active Substance: FOLIC ACID
     Dosage: 10 MG, WEEKLY
     Route: 048
  5. PLAQUENIL [Concomitant]
     Active Substance: HYDROXYCHLOROQUINE SULFATE
     Dosage: 2 DF, DAILY
  6. FLAGYL [Concomitant]
     Active Substance: METRONIDAZOLE\METRONIDAZOLE HYDROCHLORIDE
     Dosage: 250 MG, DAILY (FOR 8 DAYS)
     Route: 048
  7. FUNGIZONE [Concomitant]
     Active Substance: AMPHOTERICIN B
     Dosage: 1 DF, DAILY
     Route: 048
  8. DELURSAN [Concomitant]
     Active Substance: URSODIOL
     Dosage: 250 MG, DAILY
     Route: 048
  9. DOLIPRANE [Concomitant]
     Active Substance: ACETAMINOPHEN
     Indication: PAIN
     Dosage: 1 G, 3 TO 4 TIMES DAILY
     Route: 048
  10. URARTHONE [Concomitant]
     Dosage: 2 DF, DAILY (COFFEE SPOONS)
  11. ENBREL [Suspect]
     Active Substance: ETANERCEPT
     Indication: PRODUCT USED FOR UNKNOWN INDICATION
     Dosage: 50 MG, WEEKLY
     Route: 058
     Dates: start: 20161003
  12. IMETH [Concomitant]
     Active Substance: METHOTREXATE SODIUM
     Dosage: 20 MG, WEEKLY
     Route: 048
  13. CLARITHROMYCINE [Concomitant]
     Active Substance: CLARITHROMYCIN
     Route: 048
  14. ACUPAN [Concomitant]
     Active Substance: NEFOPAM HYDROCHLORIDE
     Indication: PAIN
     Dosage: 20 MG, 3X/DAY
  15. FLUVERMAL [Concomitant]
     Dosage: 1 DF, DAILY
     Route: 048
  16. VITAMIN B12 [Concomitant]
     Active Substance: CYANOCOBALAMIN
     Dosage: 3 DF, WEEKLY

REACTIONS (4)
  - Nausea [Recovered/Resolved]
  - Injection site swelling [Recovered/Resolved]
  - Dizziness [Recovered/Resolved]
  - Injection site erythema [Recovered/Resolved]
